FAERS Safety Report 20344543 (Version 2)
Quarter: 2022Q1

REPORT INFORMATION
  Report Type: Other
  Country: US (occurrence: US)
  Receive Date: 20220118
  Receipt Date: 20220323
  Transmission Date: 20220423
  Serious: No
  Sender: FDA-Public Use
  Company Number: US-NEUROCRINE BIOSCIENCES INC.-2022NBI00204

PATIENT

DRUGS (1)
  1. INGREZZA [Suspect]
     Active Substance: VALBENAZINE
     Indication: Generalised anxiety disorder
     Dosage: 40 MILLIGRAM, QD
     Route: 048

REACTIONS (3)
  - Paraesthesia [Unknown]
  - Abdominal discomfort [Unknown]
  - Off label use [Unknown]
